FAERS Safety Report 7416750-9 (Version None)
Quarter: 2011Q2

REPORT INFORMATION
  Report Type: 
  Country: None (occurrence: None)
  Receive Date: 20110415
  Receipt Date: 20110407
  Transmission Date: 20111010
  Serious: Yes (Hospitalization)
  Sender: FDA-Public Use
  Company Number: US-BIOGENIDEC-2010BI035854

PATIENT
  Age: 60 Year
  Sex: Female

DRUGS (3)
  1. AVONEX [Suspect]
     Indication: MULTIPLE SCLEROSIS
     Route: 030
     Dates: start: 20020501
  2. AVONEX [Suspect]
     Route: 030
     Dates: start: 20020509, end: 20100601
  3. AVONEX [Suspect]
     Route: 030
     Dates: start: 20101015

REACTIONS (2)
  - GAIT DISTURBANCE [None]
  - CYSTITIS [None]
